FAERS Safety Report 10297053 (Version 3)
Quarter: 2014Q3

REPORT INFORMATION
  Report Type: Spontaneous
  Country: JP (occurrence: JP)
  Receive Date: 20140711
  Receipt Date: 20140815
  Transmission Date: 20150326
  Serious: Yes (Death, Other)
  Sender: FDA-Public Use
  Company Number: JP-TEVA-484917ISR

PATIENT
  Age: 57 Year
  Sex: Female

DRUGS (19)
  1. PINORUBIN [Concomitant]
     Active Substance: PIRARUBICIN
     Indication: ANGIOIMMUNOBLASTIC T-CELL LYMPHOMA
     Dosage: 30 MILLIGRAM DAILY;
     Route: 042
     Dates: start: 20140325, end: 20140325
  2. GRANISETRON [Concomitant]
     Active Substance: GRANISETRON
     Indication: PROPHYLAXIS
     Dosage: 3 MILLIGRAM DAILY;
     Route: 042
     Dates: start: 20140325, end: 20140325
  3. BAKTAR [Concomitant]
     Active Substance: SULFAMETHOXAZOLE\TRIMETHOPRIM
     Indication: PROPHYLAXIS
     Dosage: 480 MILLIGRAM DAILY; TRIMETHOPRIM/SULFAMETHOXAZOLE 400/80MG/DAY
     Route: 048
     Dates: start: 20140306
  4. NAUZELIN OD [Concomitant]
     Indication: PROPHYLAXIS
     Dosage: 30 MILLIGRAM DAILY;
     Route: 048
     Dates: start: 20140306, end: 20140310
  5. FILGRASTIM BS INJ. NK [Suspect]
     Active Substance: FILGRASTIM
     Indication: NEUTROPENIA
     Dosage: 50 MICROGRAM/M2 DAILY;
     Route: 058
     Dates: start: 20140408, end: 20140414
  6. FILGRASTIM BS INJ. NK [Suspect]
     Active Substance: FILGRASTIM
     Dosage: 50 MICROGRAM/M2 DAILY;
     Route: 058
     Dates: start: 20140428, end: 20140507
  7. ENDOXAN [Concomitant]
     Active Substance: CYCLOPHOSPHAMIDE
     Indication: ANGIOIMMUNOBLASTIC T-CELL LYMPHOMA
     Dosage: 500 MILLIGRAM DAILY;
     Route: 042
     Dates: start: 20140325, end: 20140325
  8. GLORIAMIN [Concomitant]
     Indication: GASTRIC ULCER
     Dosage: 1 GRAM DAILY;
     Route: 048
     Dates: start: 20140305
  9. PINORUBIN [Concomitant]
     Active Substance: PIRARUBICIN
     Dosage: 40 MILLIGRAM DAILY;
     Route: 042
     Dates: start: 20140425, end: 20140425
  10. ENDOXAN [Concomitant]
     Active Substance: CYCLOPHOSPHAMIDE
     Dosage: 500 MILLIGRAM DAILY;
     Route: 042
     Dates: start: 20140425, end: 20140425
  11. TEPRENONE [Concomitant]
     Active Substance: TEPRENONE
     Indication: GASTRIC ULCER
     Dosage: 150 MILLIGRAM DAILY;
     Route: 048
     Dates: start: 20140305
  12. FILGRASTIM BS INJ. NK [Suspect]
     Active Substance: FILGRASTIM
     Dosage: 50 MICROGRAM/M2 DAILY;
     Route: 058
     Dates: start: 20140526, end: 20140601
  13. TAGAMET [Concomitant]
     Active Substance: CIMETIDINE
     Indication: GASTRIC ULCER
     Dosage: 400 MILLIGRAM DAILY;
     Route: 048
     Dates: start: 20140305
  14. ONCOVORIN [Concomitant]
     Indication: ANGIOIMMUNOBLASTIC T-CELL LYMPHOMA
     Dosage: 1.5 MILLIGRAM DAILY;
     Route: 042
     Dates: start: 20140325, end: 20140325
  15. PREDONINE [Concomitant]
     Active Substance: PREDNISOLONE\PREDNISOLONE ACETATE\PREDNISOLONE SODIUM SUCCINATE
     Indication: AUTOIMMUNE HAEMOLYTIC ANAEMIA
     Dates: start: 20140425
  16. ZOSYN [Concomitant]
     Active Substance: PIPERACILLIN SODIUM\TAZOBACTAM SODIUM
     Indication: SEPSIS
     Dosage: 13.5 GRAM DAILY;
     Route: 042
     Dates: start: 20140423, end: 20140428
  17. ONCOVORIN [Concomitant]
     Dosage: 1.5 MILLIGRAM DAILY;
     Route: 042
     Dates: start: 20140425, end: 20140425
  18. PREDONINE [Concomitant]
     Active Substance: PREDNISOLONE\PREDNISOLONE ACETATE\PREDNISOLONE SODIUM SUCCINATE
     Indication: ANGIOIMMUNOBLASTIC T-CELL LYMPHOMA
     Dosage: 15 MILLIGRAM DAILY;
     Route: 048
     Dates: start: 20140305
  19. PREDONINE [Concomitant]
     Active Substance: PREDNISOLONE\PREDNISOLONE ACETATE\PREDNISOLONE SODIUM SUCCINATE
     Indication: IMMUNE THROMBOCYTOPENIC PURPURA

REACTIONS (4)
  - Tumour associated fever [Unknown]
  - Death [Fatal]
  - Neutropenia [Unknown]
  - Pyrexia [Recovered/Resolved]

NARRATIVE: CASE EVENT DATE: 20140423
